FAERS Safety Report 21095305 (Version 1)
Quarter: 2022Q3

REPORT INFORMATION
  Report Type: Spontaneous
  Country: US (occurrence: None)
  Receive Date: 20220717
  Receipt Date: 20220717
  Transmission Date: 20221026
  Serious: Yes (Disabling, Other)
  Sender: FDA-Public Use
  Company Number: None

PATIENT
  Age: 64 Year
  Sex: Female
  Weight: 98.55 kg

DRUGS (3)
  1. VUITY [Suspect]
     Active Substance: PILOCARPINE HYDROCHLORIDE
     Indication: Presbyopia
     Route: 047
     Dates: start: 20220706, end: 20220706
  2. AMLODIPINE BESYLATE [Concomitant]
     Active Substance: AMLODIPINE BESYLATE
  3. IRBESARTAN [Concomitant]
     Active Substance: IRBESARTAN

REACTIONS (2)
  - Metamorphopsia [None]
  - Macular telangiectasia [None]

NARRATIVE: CASE EVENT DATE: 20220706
